FAERS Safety Report 4557266-7 (Version None)
Quarter: 2005Q1

REPORT INFORMATION
  Report Type: 
  Country: None (occurrence: None)
  Receive Date: 20050118
  Receipt Date: 20050104
  Transmission Date: 20050727
  Serious: Yes (Death)
  Sender: FDA-Public Use
  Company Number: 2005001745

PATIENT
  Age: 82 Year
  Sex: Female

DRUGS (4)
  1. CELEBREX [Suspect]
     Indication: ARTHRALGIA
     Dosage: 400 MG (200 MG, 2 IN 1 D), ORAL
     Route: 048
     Dates: start: 20041121, end: 20041125
  2. INSULIN GLARGINE (INSULIN GLARGINE) [Concomitant]
  3. QUINAPRIL HYDROCHLORIDE AND HYDROCHLOROTHIAZDE [Concomitant]
  4. BETAMETHASONE [Concomitant]

REACTIONS (2)
  - ARRHYTHMIA [None]
  - TACHYCARDIA [None]
